FAERS Safety Report 6930540-2 (Version None)
Quarter: 2010Q3

REPORT INFORMATION
  Report Type: 
  Country: None (occurrence: None)
  Receive Date: 20100818
  Receipt Date: 20100811
  Transmission Date: 20110219
  Serious: Yes (Other)
  Sender: FDA-Public Use
  Company Number: A0875201A

PATIENT
  Age: 77 Year
  Sex: Male

DRUGS (5)
  1. ADVAIR DISKUS 100/50 [Suspect]
     Dosage: 1PUFF TWICE PER DAY
     Route: 055
     Dates: start: 20100601
  2. HIGH BLOOD PRESSURE PILL [Concomitant]
  3. ANTI-CHOLESTEROL MEDICATION [Concomitant]
  4. ASPIRIN [Concomitant]
  5. PREDNISONE [Concomitant]

REACTIONS (3)
  - CHEST DISCOMFORT [None]
  - COUGH [None]
  - PNEUMONIA [None]
